FAERS Safety Report 7338758-4 (Version None)
Quarter: 2011Q1

REPORT INFORMATION
  Report Type: 
  Country: None (occurrence: None)
  Receive Date: 20110210
  Receipt Date: 20101206
  Transmission Date: 20110831
  Serious: No
  Sender: FDA-Public Use
  Company Number: 1000017617

PATIENT
  Sex: Female

DRUGS (3)
  1. SAVELLA [Suspect]
  2. AMITRIPTYLINE HYDROCHLORIDE [Suspect]
  3. GABAPENTIN [Suspect]
     Indication: NEURALGIA

REACTIONS (4)
  - MALAISE [None]
  - HYPERAESTHESIA [None]
  - GRIP STRENGTH DECREASED [None]
  - UNEVALUABLE EVENT [None]
